FAERS Safety Report 23760972 (Version 1)
Quarter: 2024Q2

REPORT INFORMATION
  Report Type: Spontaneous
  Country: BR (occurrence: BR)
  Receive Date: 20240419
  Receipt Date: 20240419
  Transmission Date: 20240717
  Serious: Yes (Hospitalization)
  Sender: FDA-Public Use
  Company Number: BR-JNJFOC-20240430095

PATIENT
  Sex: Female
  Weight: 80 kg

DRUGS (11)
  1. RYBREVANT [Suspect]
     Active Substance: AMIVANTAMAB-VMJW
     Indication: Non-small cell lung cancer
     Route: 042
     Dates: start: 20220629
  2. AZITHROMYCIN [Concomitant]
     Active Substance: AZITHROMYCIN
  3. ZOLEDRONIC ACID [Concomitant]
     Active Substance: ZOLEDRONIC ACID
     Route: 042
  4. ACETAMINOPHEN [Concomitant]
     Active Substance: ACETAMINOPHEN
  5. DIPHENHYDRAMINE [Concomitant]
     Active Substance: DIPHENHYDRAMINE
  6. DEXAMETHASONE [Concomitant]
     Active Substance: DEXAMETHASONE
  7. METRONIDAZOLE [Concomitant]
     Active Substance: METRONIDAZOLE
  8. NEOMYCIN SULFATE [Concomitant]
     Active Substance: NEOMYCIN SULFATE
  9. DOXYCYCLINE [Concomitant]
     Active Substance: DOXYCYCLINE
  10. CIPROFLOXACIN [Concomitant]
     Active Substance: CIPROFLOXACIN
  11. NIMODIPINE [Concomitant]
     Active Substance: NIMODIPINE

REACTIONS (8)
  - Hemiparesis [Unknown]
  - Aphasia [Unknown]
  - Alopecia [Unknown]
  - Skin toxicity [Unknown]
  - Rash pustular [Unknown]
  - Folliculitis [Unknown]
  - Paronychia [Unknown]
  - Loss of personal independence in daily activities [Unknown]

NARRATIVE: CASE EVENT DATE: 20230401
